FAERS Safety Report 10018068 (Version 2)
Quarter: 2014Q1

REPORT INFORMATION
  Report Type: Spontaneous
  Country: US (occurrence: US)
  Receive Date: 20140318
  Receipt Date: 20140318
  Transmission Date: 20141002
  Serious: No
  Sender: FDA-Public Use
  Company Number: US-BRISTOL-MYERS SQUIBB COMPANY-18910364

PATIENT
  Age: 45 Year
  Sex: Male
  Weight: 61.68 kg

DRUGS (1)
  1. ERBITUX [Suspect]
     Indication: HEAD AND NECK CANCER
     Dates: start: 20130507

REACTIONS (2)
  - Vomiting [Unknown]
  - Dysphonia [Recovered/Resolved]
